FAERS Safety Report 9173450 (Version 2)
Quarter: 2013Q1

REPORT INFORMATION
  Report Type: Spontaneous
  Country: IN (occurrence: None)
  Receive Date: 20130313
  Receipt Date: 20130327
  Transmission Date: 20140127
  Serious: Yes (Other)
  Sender: FDA-Public Use
  Company Number: AUR-APL-2013-02110

PATIENT
  Age: 16 Month
  Sex: Female

DRUGS (2)
  1. TOPIRAMATE [Suspect]
     Indication: EPILEPSY
  2. VALPROATE SEMISODIUM [Suspect]
     Indication: EPILEPSY

REACTIONS (15)
  - Metabolic disorder [None]
  - Lactate pyruvate ratio increased [None]
  - Amino acid level increased [None]
  - Skin odour abnormal [None]
  - Lethargy [None]
  - Somnolence [None]
  - Dyspnoea [None]
  - Convulsion [None]
  - Amino acid level increased [None]
  - Amino acid level increased [None]
  - Amino acid level increased [None]
  - Blood lactic acid increased [None]
  - Blood pyruvic acid increased [None]
  - Ammonia increased [None]
  - Dihydropyrimidine dehydrogenase deficiency [None]
